FAERS Safety Report 10552506 (Version 1)
Quarter: 2014Q4

REPORT INFORMATION
  Report Type: Spontaneous
  Country: US (occurrence: None)
  Receive Date: 20141023
  Receipt Date: 20141023
  Transmission Date: 20150529
  Serious: No
  Sender: FDA-Public Use
  Company Number: AP356-01074-SPO-US

PATIENT
  Age: 62 Year
  Sex: Male
  Weight: 100.6 kg

DRUGS (9)
  1. BELVIQ [Suspect]
     Active Substance: LORCASERIN HYDROCHLORIDE
     Indication: WEIGHT DECREASED
     Route: 048
     Dates: start: 20140714, end: 20140716
  2. TESTOSTERONE. [Concomitant]
     Active Substance: TESTOSTERONE
  3. FLOMAX ( MORNIFLUMATE) [Concomitant]
  4. VALIUM ( DIAZEPAM) [Concomitant]
  5. NORCO ( VICODIN) [Concomitant]
  6. AMLODIPINE [Concomitant]
     Active Substance: AMLODIPINE BESYLATE
  7. ATENOLOL. [Concomitant]
     Active Substance: ATENOLOL
  8. CRESTOR ( ROSUVASTATIN) [Concomitant]
  9. LOSARTAN [Concomitant]
     Active Substance: LOSARTAN

REACTIONS (5)
  - Erection increased [None]
  - Pollakiuria [None]
  - Back pain [None]
  - Energy increased [None]
  - Change of bowel habit [None]

NARRATIVE: CASE EVENT DATE: 201407
